FAERS Safety Report 6477450-5 (Version None)
Quarter: 2009Q4

REPORT INFORMATION
  Report Type: 
  Country: None (occurrence: None)
  Receive Date: 20091207
  Receipt Date: 20091105
  Transmission Date: 20100525
  Serious: Yes (Hospitalization, Disabling)
  Sender: FDA-Public Use
  Company Number: FR-SANOFI-AVENTIS-2009SA001231

PATIENT
  Age: 58 Year
  Sex: Female

DRUGS (7)
  1. LOVENOX [Suspect]
     Indication: DRUG USE FOR UNKNOWN INDICATION
     Route: 065
     Dates: start: 20090731, end: 20090805
  2. ARIXTRA [Suspect]
     Indication: DRUG USE FOR UNKNOWN INDICATION
     Route: 058
     Dates: start: 20090619, end: 20090731
  3. ROCEPHIN [Concomitant]
     Indication: OTITIS MEDIA ACUTE
     Route: 030
     Dates: start: 20090707, end: 20090731
  4. CIFLOX [Concomitant]
     Indication: OTITIS MEDIA ACUTE
     Route: 065
     Dates: start: 20090731
  5. CLAFORAN [Concomitant]
     Indication: OTITIS MEDIA ACUTE
     Route: 065
     Dates: start: 20090731
  6. STRONTIUM RANELATE [Concomitant]
     Indication: DRUG USE FOR UNKNOWN INDICATION
     Route: 048
  7. CACIT D3 [Concomitant]
     Indication: DRUG USE FOR UNKNOWN INDICATION

REACTIONS (4)
  - ANAEMIA [None]
  - HAEMORRHAGIC ASCITES [None]
  - PERIRENAL HAEMATOMA [None]
  - PLEURAL EFFUSION [None]
